FAERS Safety Report 4819148-2 (Version None)
Quarter: 2005Q4

REPORT INFORMATION
  Report Type: 
  Country: None (occurrence: None)
  Receive Date: 20051103
  Receipt Date: 20051024
  Transmission Date: 20060501
  Serious: Yes (Death, Hospitalization)
  Sender: FDA-Public Use
  Company Number: US-KINGPHARMUSA00001-K200501404

PATIENT
  Age: 60 Year
  Sex: Male
  Weight: 80 kg

DRUGS (7)
  1. KEMADRIN [Suspect]
     Indication: AKINESIA
     Dosage: 5 MG, BID
     Dates: start: 20040101, end: 20040119
  2. CITALOPRAM [Suspect]
     Indication: DEPRESSION
     Dosage: 20 MG, QD
     Route: 048
     Dates: start: 20031201, end: 20031225
  3. CITALOPRAM [Suspect]
     Dosage: 30 MG, QD
     Route: 048
     Dates: start: 20031226, end: 20031201
  4. CITALOPRAM [Suspect]
     Dosage: 20 MG, QD
     Route: 048
     Dates: start: 20031201, end: 20040113
  5. SERTRALINE HCL [Suspect]
     Indication: DEPRESSION
     Dates: start: 20040113, end: 20040101
  6. OXAZEPAM [Suspect]
     Dates: end: 20040119
  7. THYROXINE SODIUM [Concomitant]
     Dates: end: 20040119

REACTIONS (9)
  - AKINESIA [None]
  - BRADYKINESIA [None]
  - CATATONIA [None]
  - DELUSION [None]
  - DRUG EFFECT DECREASED [None]
  - POLYTRAUMATISM [None]
  - PSYCHOTIC DISORDER [None]
  - REFUSAL OF TREATMENT BY PATIENT [None]
  - ROAD TRAFFIC ACCIDENT [None]
